FAERS Safety Report 25179445 (Version 1)
Quarter: 2025Q2

REPORT INFORMATION
  Report Type: Spontaneous
  Country: US (occurrence: US)
  Receive Date: 20250409
  Receipt Date: 20250409
  Transmission Date: 20250716
  Serious: Yes (Hospitalization, Other)
  Sender: GLAND PHARMA
  Company Number: US-GLANDPHARMA-US-2025GLNSPO00989

PATIENT

DRUGS (1)
  1. PACLITAXEL [Suspect]
     Active Substance: PACLITAXEL
     Indication: Product used for unknown indication
     Route: 065

REACTIONS (2)
  - Respiratory arrest [Unknown]
  - Anaphylactic shock [Unknown]
